FAERS Safety Report 7033709-4 (Version None)
Quarter: 2010Q4

REPORT INFORMATION
  Report Type: 
  Country: None (occurrence: None)
  Receive Date: 20101007
  Receipt Date: 20100924
  Transmission Date: 20110411
  Serious: Yes (Other)
  Sender: FDA-Public Use
  Company Number: NZ-MYLANLABS-2010S1017668

PATIENT
  Sex: Female

DRUGS (4)
  1. ATENOLOL [Suspect]
     Indication: BLOOD PRESSURE
     Route: 048
  2. LISINOPRIL [Concomitant]
     Indication: PRODUCT USED FOR UNKNOWN INDICATION
  3. ZOPICLONE [Concomitant]
     Indication: SLEEP DISORDER
  4. ATENOLOL [Concomitant]
     Dosage: HALLF A 50MG TAB
     Dates: start: 20100501

REACTIONS (2)
  - LIP SWELLING [None]
  - SWOLLEN TONGUE [None]
